FAERS Safety Report 13260267 (Version 1)
Quarter: 2017Q1

REPORT INFORMATION
  Report Type: Spontaneous
  Country: US (occurrence: US)
  Receive Date: 20170222
  Receipt Date: 20170222
  Transmission Date: 20170428
  Serious: Yes (Other)
  Sender: FDA-Public Use
  Company Number: US-DRREDDYS-USA/USA/17/0087395

PATIENT
  Age: 74 Year
  Sex: Female

DRUGS (3)
  1. CARBOPLATIN. [Suspect]
     Active Substance: CARBOPLATIN
     Indication: PAPILLARY SEROUS ENDOMETRIAL CARCINOMA
     Route: 065
     Dates: start: 20141016
  2. BEVACIZUMAB [Suspect]
     Active Substance: BEVACIZUMAB
     Indication: PAPILLARY SEROUS ENDOMETRIAL CARCINOMA
     Route: 065
     Dates: start: 20141016
  3. GEMCITABINE [Suspect]
     Active Substance: GEMCITABINE\GEMCITABINE HYDROCHLORIDE
     Indication: PAPILLARY SEROUS ENDOMETRIAL CARCINOMA
     Route: 065
     Dates: start: 20141016

REACTIONS (4)
  - Anaemia [Unknown]
  - Gastrointestinal disorder [Unknown]
  - Disease progression [Recovered/Resolved]
  - Muscular weakness [Unknown]
